FAERS Safety Report 7770862 (Version 2)
Quarter: 2020Q4

REPORT INFORMATION
  Report Type: Spontaneous
  Country: FR (occurrence: FR)
  Receive Date: 20110124
  Receipt Date: 20201008
  Transmission Date: 20210114
  Serious: Yes (Hospitalization)
  Sender: FDA-Public Use
  Company Number: FR-PFIZER INC-HQWYE108809AUG04

PATIENT
  Age: 10 Year
  Sex: Female

DRUGS (4)
  1. ADVIL [Suspect]
     Active Substance: IBUPROFEN
     Indication: PYREXIA
  2. ADVIL [Suspect]
     Active Substance: IBUPROFEN
     Indication: PHARYNGITIS
     Dosage: MAXIMUM OF 30 MG/KG/DAY
     Route: 048
  3. BETAMETHASONE. [Concomitant]
     Active Substance: BETAMETHASONE
     Dosage: UNK
     Route: 065
  4. OXATOMIDE [Concomitant]
     Active Substance: OXATOMIDE
     Dosage: UNK

REACTIONS (10)
  - Conjunctivitis [Recovered/Resolved]
  - Faeces discoloured [Recovered/Resolved]
  - Vanishing bile duct syndrome [Recovering/Resolving]
  - Arthralgia [Recovered/Resolved]
  - Hepatitis [Recovered/Resolved]
  - Chromaturia [Recovered/Resolved]
  - Cheilitis [Recovered/Resolved]
  - Stevens-Johnson syndrome [Recovered/Resolved]
  - Rash maculo-papular [Recovered/Resolved]
  - Pharyngeal erythema [Recovered/Resolved]
